FAERS Safety Report 25343603 (Version 1)
Quarter: 2025Q2

REPORT INFORMATION
  Report Type: Spontaneous
  Country: US (occurrence: US)
  Receive Date: 20250521
  Receipt Date: 20250521
  Transmission Date: 20250717
  Serious: No
  Sender: COVIS PHARMA GMBH
  Company Number: US-AMAGP-2025COV00574

PATIENT
  Sex: Female

DRUGS (1)
  1. ALVESCO [Suspect]
     Active Substance: CICLESONIDE
     Indication: Asthma
     Dosage: 2 PUFFS TWICE A DAY AND THEN SELF REDUCED TO 1 PUFF TWICE A DAY TO SPEAK BETTER
     Route: 065

REACTIONS (2)
  - Aphonia [Unknown]
  - Intentional product use issue [Unknown]
